FAERS Safety Report 24854534 (Version 1)
Quarter: 2025Q1

REPORT INFORMATION
  Report Type: Report from Study
  Country: US (occurrence: US)
  Receive Date: 20250117
  Receipt Date: 20250117
  Transmission Date: 20250408
  Serious: No
  Sender: ACCORD
  Company Number: US-Accord-439189

PATIENT
  Age: 29 Year
  Sex: Male

DRUGS (1)
  1. CLOZAPINE [Suspect]
     Active Substance: CLOZAPINE
     Indication: Schizoaffective disorder bipolar type

REACTIONS (5)
  - Drug level increased [Unknown]
  - White blood cell count increased [Recovered/Resolved]
  - Lymphocyte percentage decreased [Recovered/Resolved]
  - Neutrophil count increased [Recovered/Resolved]
  - Drug level decreased [Unknown]

NARRATIVE: CASE EVENT DATE: 20240517
